FAERS Safety Report 4835963-3 (Version None)
Quarter: 2005Q4

REPORT INFORMATION
  Report Type: 
  Country: None (occurrence: None)
  Receive Date: 20051123
  Receipt Date: 20051109
  Transmission Date: 20060501
  Serious: Yes (Hospitalization)
  Sender: FDA-Public Use
  Company Number: 2005AP05803

PATIENT
  Age: 28840 Day
  Sex: Female

DRUGS (1)
  1. NEXIUM [Suspect]
     Route: 048
     Dates: start: 20050526, end: 20050530

REACTIONS (2)
  - HALLUCINATION [None]
  - PANIC ATTACK [None]
